FAERS Safety Report 7505652-5 (Version None)
Quarter: 2011Q2

REPORT INFORMATION
  Report Type: 
  Country: None (occurrence: None)
  Receive Date: 20110526
  Receipt Date: 20110516
  Transmission Date: 20111010
  Serious: Yes (Hospitalization)
  Sender: FDA-Public Use
  Company Number: DE-ABBOTT-11P-062-0723049-00

PATIENT
  Sex: Male
  Weight: 75 kg

DRUGS (3)
  1. HUMIRA [Suspect]
     Indication: CROHN'S DISEASE
     Dosage: 80MG (BASELINE) / 40MG (WEEK 2)
     Route: 058
     Dates: start: 20090420, end: 20110101
  2. BUDESONIDE [Concomitant]
     Indication: CROHN'S DISEASE
  3. HUMIRA [Suspect]
     Route: 058
     Dates: start: 20110416

REACTIONS (1)
  - MENINGITIS VIRAL [None]
